FAERS Safety Report 6304779-3 (Version None)
Quarter: 2009Q3

REPORT INFORMATION
  Report Type: 
  Country: None (occurrence: None)
  Receive Date: 20090806
  Receipt Date: 20090723
  Transmission Date: 20100115
  Serious: No
  Sender: FDA-Public Use
  Company Number: B0585414A

PATIENT
  Age: 48 Year
  Sex: Male

DRUGS (3)
  1. SUMATRIPTAN SUCCINATE [Suspect]
     Indication: PAIN
  2. TRAMADOL HYDROCHLORIDE [Suspect]
     Indication: PAIN
  3. VENLAFAXINE HYDROCHLORIDE [Suspect]
     Indication: DEPRESSION

REACTIONS (6)
  - AGITATION [None]
  - CONFUSIONAL STATE [None]
  - DRUG INTERACTION [None]
  - DRY MOUTH [None]
  - HYPERHIDROSIS [None]
  - SEROTONIN SYNDROME [None]
